FAERS Safety Report 5177102-8 (Version None)
Quarter: 2006Q4

REPORT INFORMATION
  Report Type: 
  Country: None (occurrence: None)
  Receive Date: 20061207
  Receipt Date: 20061124
  Transmission Date: 20070319
  Serious: Yes (Life-Threatening, Other)
  Sender: FDA-Public Use
  Company Number: 2006142252

PATIENT
  Age: 80 Year
  Sex: Male

DRUGS (5)
  1. CELEBREX [Suspect]
     Indication: PAIN
     Dosage: (200 MG), ORAL
     Route: 048
     Dates: start: 20061025, end: 20061025
  2. TIATRAL (ALOXIPRIN) [Concomitant]
  3. ENALAPRIL MALEATE [Concomitant]
  4. CITALOPRAM HYDROBROMIDE [Concomitant]
  5. NEURONTIN [Concomitant]

REACTIONS (2)
  - RASH GENERALISED [None]
  - SHOCK [None]
